FAERS Safety Report 23247963 (Version 1)
Quarter: 2023Q4

REPORT INFORMATION
  Report Type: Report from Study
  Country: US (occurrence: US)
  Receive Date: 20231130
  Receipt Date: 20231130
  Transmission Date: 20240110
  Serious: Yes (Hospitalization)
  Sender: FDA-Public Use
  Company Number: US-GILEAD-2023-0652882

PATIENT
  Sex: Female

DRUGS (7)
  1. AZTREONAM LYSINE [Suspect]
     Active Substance: AZTREONAM LYSINE
     Indication: Product used for unknown indication
     Dosage: 75 MG, TID
     Route: 055
  2. VORICONAZOLE [Concomitant]
     Active Substance: VORICONAZOLE
  3. PREGABALIN [Concomitant]
     Active Substance: PREGABALIN
  4. AMIKACIN SULFATE [Concomitant]
     Active Substance: AMIKACIN SULFATE
  5. CEFTRIAXONE [Concomitant]
     Active Substance: CEFTRIAXONE\CEFTRIAXONE SODIUM
  6. BUDESONIDE [Concomitant]
     Active Substance: BUDESONIDE
  7. BROVANA [Concomitant]
     Active Substance: ARFORMOTEROL TARTRATE

REACTIONS (1)
  - Infection [Not Recovered/Not Resolved]
